FAERS Safety Report 6435821-7 (Version None)
Quarter: 2009Q4

REPORT INFORMATION
  Report Type: 
  Country: None (occurrence: None)
  Receive Date: 20091110
  Receipt Date: 20091110
  Transmission Date: 20100525
  Serious: No
  Sender: FDA-Public Use
  Company Number: None

PATIENT
  Age: 54 Year
  Sex: Female
  Weight: 67.13 kg

DRUGS (1)
  1. RISPERIDONE [Suspect]
     Indication: POST-TRAUMATIC STRESS DISORDER
     Dosage: 1 MG BID PO
     Route: 048
     Dates: start: 20091029, end: 20091105

REACTIONS (2)
  - BREAST DISCHARGE [None]
  - SALIVARY HYPERSECRETION [None]
